FAERS Safety Report 18884429 (Version 1)
Quarter: 2021Q1

REPORT INFORMATION
  Report Type: Spontaneous
  Country: US (occurrence: US)
  Receive Date: 20210212
  Receipt Date: 20210212
  Transmission Date: 20210420
  Serious: No
  Sender: FDA-Public Use
  Company Number: US-BIOVITRUM-2021US1394

PATIENT
  Sex: Male
  Weight: 8 kg

DRUGS (3)
  1. SYNAGIS [Suspect]
     Active Substance: PALIVIZUMAB
     Indication: CONGENITAL PULMONARY VALVE ATRESIA
  2. SYNAGIS [Suspect]
     Active Substance: PALIVIZUMAB
     Indication: VELO-CARDIO-FACIAL SYNDROME
     Dosage: SYNAGIS 100MG/1ML VL LIQUID
     Route: 030
  3. SYNAGIS [Suspect]
     Active Substance: PALIVIZUMAB
     Indication: HEART DISEASE CONGENITAL

REACTIONS (1)
  - Weight decreased [Unknown]
